APPROVED DRUG PRODUCT: PREGABALIN
Active Ingredient: PREGABALIN
Strength: 150MG
Dosage Form/Route: CAPSULE;ORAL
Application: A209530 | Product #005 | TE Code: AB
Applicant: JUBILANT GENERICS LTD
Approved: May 20, 2025 | RLD: No | RS: No | Type: RX